FAERS Safety Report 9721727 (Version 1)
Quarter: 2013Q4

REPORT INFORMATION
  Report Type: Spontaneous
  Country: US (occurrence: US)
  Receive Date: 20131201
  Receipt Date: 20131201
  Transmission Date: 20140711
  Serious: No
  Sender: FDA-Public Use
  Company Number: US-ABBVIE-13P-163-1149665-00

PATIENT
  Age: 57 Year
  Sex: Male
  Weight: 68.1 kg

DRUGS (9)
  1. ANDROGEL [Suspect]
     Indication: BLOOD TESTOSTERONE DECREASED
     Route: 061
     Dates: start: 201303
  2. LIPITOR [Concomitant]
     Indication: BLOOD CHOLESTEROL
  3. SYNTHROID [Concomitant]
     Indication: THYROIDITIS
  4. ZOLPIDEM ER [Concomitant]
     Indication: POOR QUALITY SLEEP
  5. CALCIUM [Concomitant]
     Indication: PRODUCT USED FOR UNKNOWN INDICATION
  6. CENTRUM MULTIVITAMIN [Concomitant]
     Indication: PRODUCT USED FOR UNKNOWN INDICATION
  7. ASPIRIN [Concomitant]
     Indication: PRODUCT USED FOR UNKNOWN INDICATION
     Route: 048
  8. LUMIGAN [Concomitant]
     Indication: GLAUCOMA
  9. XANAX [Concomitant]
     Indication: NERVOUSNESS
     Dates: start: 2013

REACTIONS (1)
  - Dizziness [Not Recovered/Not Resolved]
